FAERS Safety Report 5062019-X (Version None)
Quarter: 2006Q3

REPORT INFORMATION
  Report Type: 
  Country: None (occurrence: None)
  Receive Date: 20060719
  Receipt Date: 20060719
  Transmission Date: 20061208
  Serious: Yes (Other)
  Sender: FDA-Public Use
  Company Number: None

PATIENT
  Sex: Female
  Weight: 72.5755 kg

DRUGS (3)
  1. LIPITOR [Suspect]
     Indication: BLOOD CHOLESTEROL INCREASED
     Dosage: TRIED LIPITOR 2-3 TIMES
  2. PRAVACHOL [Suspect]
     Dosage: TWICE
  3. ZETIA [Suspect]
     Dosage: ONCE

REACTIONS (2)
  - ARTHRALGIA [None]
  - MYALGIA [None]
